FAERS Safety Report 7457947-1 (Version None)
Quarter: 2011Q2

REPORT INFORMATION
  Report Type: 
  Country: None (occurrence: None)
  Receive Date: 20110504
  Receipt Date: 20110421
  Transmission Date: 20111010
  Serious: Yes (Death)
  Sender: FDA-Public Use
  Company Number: DE-GENENTECH-313540

PATIENT
  Sex: Male

DRUGS (9)
  1. CYCLOPHOSPHAMIDE [Suspect]
     Indication: HODGKIN'S DISEASE
     Dosage: 650 MG/M2, UNK
     Route: 065
     Dates: start: 20110126
  2. PREDNISONE [Suspect]
     Route: 065
     Dates: start: 20110126, end: 20110203
  3. ETOPOSIDE [Suspect]
     Indication: HODGKIN'S DISEASE
     Dosage: 100 MG/M2, UNK
     Route: 065
     Dates: start: 20110126, end: 20110128
  4. PREDNISONE [Suspect]
     Indication: HODGKIN'S DISEASE
     Dosage: 40 MG/M2, UNK
     Route: 065
     Dates: start: 20110126
  5. VINCRISTINE [Suspect]
     Indication: HODGKIN'S DISEASE
     Dosage: 14 MG/M2, UNK
     Route: 065
     Dates: start: 20110126, end: 20110202
  6. ADRIAMYCIN PFS [Suspect]
     Indication: HODGKIN'S DISEASE
     Dosage: 25 MG/M2, UNK
     Route: 042
     Dates: start: 20110126, end: 20110202
  7. PROCARBAZINE [Suspect]
     Indication: HODGKIN'S DISEASE
     Dosage: 100 MG/M2, UNK
     Route: 065
     Dates: start: 20110126
  8. RITUXIMAB [Suspect]
     Indication: HODGKIN'S DISEASE
     Dosage: 375 MG/M2, UNK
     Route: 042
     Dates: start: 20110125
  9. BLEOMYCIN [Suspect]
     Indication: HODGKIN'S DISEASE
     Dosage: 10 MG/M2, UNK
     Route: 042
     Dates: start: 20110126, end: 20110202

REACTIONS (13)
  - ACUTE RESPIRATORY DISTRESS SYNDROME [None]
  - LYMPHOPENIA [None]
  - MULTI-ORGAN FAILURE [None]
  - SEPSIS [None]
  - FEBRILE INFECTION [None]
  - CHILLS [None]
  - THROMBOCYTOPENIA [None]
  - PNEUMONIA VIRAL [None]
  - RHABDOMYOLYSIS [None]
  - SUPERINFECTION BACTERIAL [None]
  - CRITICAL ILLNESS POLYNEUROPATHY [None]
  - LEUKOPENIA [None]
  - INFLUENZA [None]
